FAERS Safety Report 14088568 (Version 2)
Quarter: 2017Q4

REPORT INFORMATION
  Report Type: Report from Study
  Country: CA (occurrence: CA)
  Receive Date: 20171013
  Receipt Date: 20171016
  Transmission Date: 20180321
  Serious: Yes (Hospitalization, Other)
  Sender: FDA-Public Use
  Company Number: CA-JNJFOC-20171009788

PATIENT
  Age: 52 Year
  Sex: Male

DRUGS (1)
  1. STELARA [Suspect]
     Active Substance: USTEKINUMAB
     Indication: PSORIASIS
     Route: 058
     Dates: start: 20160718

REACTIONS (3)
  - Subcutaneous emphysema [Recovered/Resolved]
  - Cholelithiasis [Not Recovered/Not Resolved]
  - Procedural complication [Unknown]

NARRATIVE: CASE EVENT DATE: 201708
